FAERS Safety Report 19069678 (Version 1)
Quarter: 2021Q1

REPORT INFORMATION
  Report Type: Spontaneous
  Country: FR (occurrence: FR)
  Receive Date: 20210329
  Receipt Date: 20210329
  Transmission Date: 20210420
  Serious: Yes (Hospitalization)
  Sender: FDA-Public Use
  Company Number: FR-009507513-2103FRA006723

PATIENT
  Age: 81 Year
  Sex: Male
  Weight: 51 kg

DRUGS (13)
  1. FINASTERIDE. [Concomitant]
     Active Substance: FINASTERIDE
     Dosage: 5 MILLIGRAM, Q24H
     Route: 048
  2. AMOXICILLIN. [Suspect]
     Active Substance: AMOXICILLIN
     Indication: URINARY TRACT INFECTION
     Dosage: UNK
     Dates: start: 20201218, end: 20201224
  3. DORZOLAMIDE HYDROCHLORIDE. [Concomitant]
     Active Substance: DORZOLAMIDE HYDROCHLORIDE
     Dosage: 2 GTT DROPS (DROP (1/12 MILLILITRE)), Q24H
     Route: 047
  4. STROMECTOL [Suspect]
     Active Substance: IVERMECTIN
     Indication: ACARODERMATITIS
     Dosage: 1 TABLET, 1 X / 10 DAYS
     Route: 048
     Dates: end: 20210104
  5. STROMECTOL [Suspect]
     Active Substance: IVERMECTIN
     Dosage: 1 TABLET, 1 X / 10 DAYS
     Route: 048
     Dates: end: 20210104
  6. PANTOPRAZOLE [Concomitant]
     Active Substance: PANTOPRAZOLE
     Dosage: 20 MILLIGRAM, Q24H
     Route: 048
     Dates: end: 20210111
  7. ZOPICLONE [Concomitant]
     Active Substance: ZOPICLONE
     Dosage: 7.5 MILLIGRAM, Q24H
     Route: 048
  8. SERESTA [Concomitant]
     Active Substance: OXAZEPAM
     Dosage: 20 MILLIGRAM, Q24H
     Route: 048
     Dates: end: 20210111
  9. ACETAMINOPHEN. [Concomitant]
     Active Substance: ACETAMINOPHEN
     Dosage: 3000 MILLIGRAM, Q24H
     Route: 048
  10. TOPISCAB [Suspect]
     Active Substance: PERMETHRIN
     Indication: ACARODERMATITIS
     Dosage: 1 DOSAGE FORM, 1 X / 10 DAYS
     Route: 003
     Dates: end: 20210104
  11. POLYETHYLENE GLYCOL 3350. [Concomitant]
     Active Substance: POLYETHYLENE GLYCOL 3350
     Dosage: 2 DOSAGE FORM, Q24H
     Route: 048
  12. STROMECTOL [Suspect]
     Active Substance: IVERMECTIN
     Dosage: 1 TABLET, 1 X / 10 DAYS
     Route: 048
     Dates: end: 20210104
  13. METFORMIN [Concomitant]
     Active Substance: METFORMIN HYDROCHLORIDE
     Dosage: 1000 MILLIGRAM, Q24H
     Route: 048
     Dates: end: 20210111

REACTIONS (1)
  - Pemphigoid [Recovering/Resolving]

NARRATIVE: CASE EVENT DATE: 20201221
